FAERS Safety Report 7761804-0 (Version None)
Quarter: 2011Q3

REPORT INFORMATION
  Report Type: 
  Country: None (occurrence: None)
  Receive Date: 20110920
  Receipt Date: 20110907
  Transmission Date: 20111222
  Serious: Yes (Hospitalization)
  Sender: FDA-Public Use
  Company Number: CA-UCBSA-040873

PATIENT
  Sex: Female
  Weight: 55 kg

DRUGS (8)
  1. CIMZIA [Suspect]
     Route: 058
     Dates: start: 20110520, end: 20110801
  2. IMURAN [Concomitant]
     Indication: RHEUMATOID ARTHRITIS
     Route: 048
     Dates: start: 20010101
  3. FUROSEMIDE [Concomitant]
     Route: 048
  4. CIMZIA [Suspect]
     Indication: RHEUMATOID ARTHRITIS
     Dosage: WEEKS 0, 2 AND 4
     Route: 058
     Dates: start: 20110408, end: 20110506
  5. CELEBREX [Concomitant]
     Indication: RHEUMATOID ARTHRITIS
     Route: 048
     Dates: start: 20080101
  6. POTASSIUM CHLORIDE [Concomitant]
     Route: 048
  7. TYLENOL ES [Concomitant]
     Indication: PAIN
     Route: 048
  8. ZANTAC [Concomitant]
     Route: 048

REACTIONS (2)
  - LOSS OF CONSCIOUSNESS [None]
  - DIZZINESS [None]
